FAERS Safety Report 8114351-0 (Version None)
Quarter: 2012Q1

REPORT INFORMATION
  Report Type: 
  Country: None (occurrence: None)
  Receive Date: 20120206
  Receipt Date: 20120125
  Transmission Date: 20120608
  Serious: No
  Sender: FDA-Public Use
  Company Number: US-BIOGENIDEC-2012BI003079

PATIENT
  Age: 59 Year
  Sex: Male

DRUGS (2)
  1. CHOLESTEROL MEDICATION [Concomitant]
  2. TYSABRI [Suspect]
     Indication: MULTIPLE SCLEROSIS
     Route: 042
     Dates: start: 20100720

REACTIONS (1)
  - HEPATIC ENZYME ABNORMAL [None]
